FAERS Safety Report 9181878 (Version 1)
Quarter: 2013Q1

REPORT INFORMATION
  Report Type: Spontaneous
  Country: US (occurrence: US)
  Receive Date: 20130322
  Receipt Date: 20130322
  Transmission Date: 20140127
  Serious: No
  Sender: FDA-Public Use
  Company Number: US-BAYER-2013-035714

PATIENT
  Sex: 0

DRUGS (2)
  1. MIDOL EXTENDED RELIEF [Suspect]
     Indication: BACK PAIN
  2. TYLENOL NOS [Concomitant]

REACTIONS (1)
  - Drug ineffective [None]
